FAERS Safety Report 7542009-5 (Version None)
Quarter: 2011Q2

REPORT INFORMATION
  Report Type: 
  Country: None (occurrence: None)
  Receive Date: 20110606
  Receipt Date: 20110525
  Transmission Date: 20111010
  Serious: Yes (Other)
  Sender: FDA-Public Use
  Company Number: GB-ACCORD-009370

PATIENT

DRUGS (4)
  1. ASPIRIN [Concomitant]
  2. SECURON (SECURON) [Concomitant]
  3. SIMVASTATIN [Suspect]
     Indication: HYPERLIPIDAEMIA
     Dosage: 20.00-MG-/ ORAL
     Route: 048
     Dates: start: 20100101, end: 20110301
  4. WARFARIN SODIUM [Concomitant]

REACTIONS (1)
  - DYSPNOEA EXERTIONAL [None]
